FAERS Safety Report 8326354-1 (Version None)
Quarter: 2012Q2

REPORT INFORMATION
  Report Type: 
  Country: None (occurrence: None)
  Receive Date: 20120501
  Receipt Date: 20120424
  Transmission Date: 20120825
  Serious: Yes (Death)
  Sender: FDA-Public Use
  Company Number: DE-ACTELION-A-US2012-64730

PATIENT

DRUGS (3)
  1. REVATIO [Concomitant]
  2. VENTAVIS [Suspect]
     Indication: PULMONARY ARTERIAL HYPERTENSION
     Dosage: 2.5 UG, Q4H
     Route: 055
     Dates: start: 20080618
  3. VOLIBRIS [Concomitant]

REACTIONS (1)
  - DEATH [None]
